FAERS Safety Report 6836930-0 (Version None)
Quarter: 2010Q3

REPORT INFORMATION
  Report Type: 
  Country: None (occurrence: None)
  Receive Date: 20100713
  Receipt Date: 20100624
  Transmission Date: 20110219
  Serious: Yes (Hospitalization)
  Sender: FDA-Public Use
  Company Number: PHHY2010TW40490

PATIENT
  Sex: Female
  Weight: 55 kg

DRUGS (1)
  1. NEORAL [Suspect]
     Indication: RENAL TRANSPLANT
     Dosage: UNK
     Route: 048
     Dates: start: 20090501

REACTIONS (5)
  - ABDOMINAL PAIN LOWER [None]
  - FEELING COLD [None]
  - MALAISE [None]
  - PYREXIA [None]
  - TENDERNESS [None]
